FAERS Safety Report 17069862 (Version 5)
Quarter: 2020Q1

REPORT INFORMATION
  Report Type: Spontaneous
  Country: JP (occurrence: JP)
  Receive Date: 20191125
  Receipt Date: 20200221
  Transmission Date: 20200409
  Serious: Yes (Death, Life-Threatening, Other)
  Sender: FDA-Public Use
  Company Number: JP-009507513-1909JPN003601J

PATIENT
  Age: 34 Year
  Sex: Female
  Weight: 48 kg

DRUGS (9)
  1. LIXIANA [Concomitant]
     Active Substance: EDOXABAN TOSYLATE
     Dosage: 30MG, AFTER BREAKFAST
     Route: 048
  2. PLANOVAR [Concomitant]
     Active Substance: ETHINYL ESTRADIOL\NORGESTREL
     Dosage: 1 DOSAGE FORM, QD
     Route: 048
  3. MAGMITT [Concomitant]
     Active Substance: MAGNESIUM OXIDE
     Dosage: 990MG, AFTER EACH MEAL
     Route: 048
  4. REBAMIPIDE [Concomitant]
     Active Substance: REBAMIPIDE
     Dosage: 300MG, AFTER EACH MEAL
     Route: 048
  5. TSUMURA DAIKENCHUTO EXTRACT GRANULES FOR ETHICAL USE [Concomitant]
     Active Substance: HERBALS
     Dosage: 7.5G AFTER EACH MEAL
     Route: 048
  6. NIZATIDINE. [Concomitant]
     Active Substance: NIZATIDINE
     Dosage: 150MG, AFTER BREAKFAST AND DINNER
     Route: 048
  7. TRIMEBUTINE MALEATE [Concomitant]
     Active Substance: TRIMEBUTINE MALEATE
     Dosage: 300MG, AFTER EACH MEAL
     Route: 048
  8. KEYTRUDA [Suspect]
     Active Substance: PEMBROLIZUMAB
     Indication: MALIGNANT HYDATIDIFORM MOLE
     Dosage: 200 MILLIGRAM, Q3W
     Route: 041
     Dates: start: 20180607, end: 20181128
  9. BIO-THREE [Concomitant]
     Active Substance: HERBALS
     Dosage: 3 TABLETS, AFTER EACH MEAL
     Route: 048

REACTIONS (3)
  - Malignant neoplasm progression [Fatal]
  - Immune thrombocytopenic purpura [Fatal]
  - Off label use [Unknown]

NARRATIVE: CASE EVENT DATE: 20180607
